FAERS Safety Report 6206017-9 (Version None)
Quarter: 2009Q2

REPORT INFORMATION
  Report Type: 
  Country: None (occurrence: None)
  Receive Date: 20090528
  Receipt Date: 20090518
  Transmission Date: 20091009
  Serious: Yes (Hospitalization, Other)
  Sender: FDA-Public Use
  Company Number: GB-ELI_LILLY_AND_COMPANY-GB200905003736

PATIENT
  Sex: Male

DRUGS (1)
  1. HUMALOG MIX 50/50 [Suspect]

REACTIONS (1)
  - DIABETIC KETOACIDOSIS [None]
